FAERS Safety Report 4527816-5 (Version None)
Quarter: 2004Q4

REPORT INFORMATION
  Report Type: 
  Country: None (occurrence: None)
  Receive Date: 20041123
  Receipt Date: 20040601
  Transmission Date: 20050328
  Serious: Yes (Hospitalization)
  Sender: FDA-Public Use
  Company Number: ATO-04-0552(0)

PATIENT
  Age: 78 Year
  Sex: Female
  Weight: 63.5036 kg

DRUGS (9)
  1. TRISENOX [Suspect]
     Indication: MULTIPLE MYELOMA
     Dosage: (5 DAYS), IVI
     Route: 042
     Dates: start: 20040517, end: 20040521
  2. OXYCODONE HCL [Concomitant]
  3. ACTONEL [Concomitant]
  4. NEURONTIN [Concomitant]
  5. PLAVIX [Concomitant]
  6. CALCIUM [Concomitant]
  7. COREG [Concomitant]
  8. METFORMIN HCL [Concomitant]
  9. CELEXA [Concomitant]

REACTIONS (7)
  - CONVULSION [None]
  - DYSPNOEA [None]
  - ELECTROCARDIOGRAM QT PROLONGED [None]
  - INFECTION [None]
  - RASH [None]
  - TACHYCARDIA [None]
  - WEIGHT INCREASED [None]
